FAERS Safety Report 6854356-0 (Version None)
Quarter: 2010Q3

REPORT INFORMATION
  Report Type: 
  Country: None (occurrence: None)
  Receive Date: 20100717
  Receipt Date: 20080103
  Transmission Date: 20110219
  Serious: No
  Sender: FDA-Public Use
  Company Number: US-PFIZER INC-2008001710

PATIENT
  Sex: Female
  Weight: 74.09 kg

DRUGS (4)
  1. CHANTIX [Suspect]
     Indication: SMOKING CESSATION THERAPY
     Dates: start: 20071225
  2. PROMETHAZINE [Suspect]
     Indication: NAUSEA
     Dosage: EVERY 6 HOURS EVERYDAY
     Dates: start: 20080101
  3. PROMETHAZINE [Suspect]
     Indication: VOMITING
  4. LORAZEPAM [Concomitant]

REACTIONS (7)
  - DIARRHOEA [None]
  - DRUG DOSE OMISSION [None]
  - FATIGUE [None]
  - INSOMNIA [None]
  - NAUSEA [None]
  - PAROSMIA [None]
  - WEIGHT DECREASED [None]
